FAERS Safety Report 22898027 (Version 2)
Quarter: 2024Q1

REPORT INFORMATION
  Report Type: Spontaneous
  Country: US (occurrence: US)
  Receive Date: 20230903
  Receipt Date: 20240304
  Transmission Date: 20240409
  Serious: No
  Sender: FDA-Public Use
  Company Number: US-SA-SAC20230831000505

PATIENT
  Age: 60 Year
  Sex: Female
  Weight: 92.98 kg

DRUGS (5)
  1. KEVZARA [Suspect]
     Active Substance: SARILUMAB
     Indication: Rheumatoid arthritis
     Dosage: 200 MG, QOW
     Route: 058
     Dates: start: 2020
  2. KEVZARA [Suspect]
     Active Substance: SARILUMAB
     Dosage: 200 MG, QW
     Route: 058
  3. METHOTREXATE SODIUM [Concomitant]
     Active Substance: METHOTREXATE SODIUM
     Dosage: UNK
  4. METHOTREXATE [Concomitant]
     Active Substance: METHOTREXATE
     Dosage: UNK
  5. MINERALS\VITAMINS [Concomitant]
     Active Substance: MINERALS\VITAMINS

REACTIONS (3)
  - Tongue haemorrhage [Unknown]
  - Platelet count decreased [Unknown]
  - Inappropriate schedule of product administration [Unknown]
